FAERS Safety Report 14555966 (Version 1)
Quarter: 2018Q1

REPORT INFORMATION
  Report Type: Spontaneous
  Country: US (occurrence: US)
  Receive Date: 20180221
  Receipt Date: 20180221
  Transmission Date: 20180509
  Serious: Yes (Other)
  Sender: FDA-Public Use
  Company Number: US-JNJFOC-20180210501

PATIENT
  Age: 38 Year
  Sex: Female
  Weight: 118 kg

DRUGS (4)
  1. METFORMIN [Concomitant]
     Active Substance: METFORMIN HYDROCHLORIDE
     Indication: DIABETES MELLITUS
     Route: 065
  2. AMBIEN [Concomitant]
     Active Substance: ZOLPIDEM TARTRATE
     Indication: PRODUCT USED FOR UNKNOWN INDICATION
     Route: 065
  3. SEROQUEL [Concomitant]
     Active Substance: QUETIAPINE FUMARATE
     Indication: PRODUCT USED FOR UNKNOWN INDICATION
     Route: 065
  4. JOHNSONS BABY PURE CORNSTARCH MEDICATED [Suspect]
     Active Substance: ZINC OXIDE
     Indication: PRODUCT USED FOR UNKNOWN INDICATION
     Dosage: JUST ENOUGH AMOUNT TO STAY FRESH, TWO TIME
     Route: 061
     Dates: start: 201509

REACTIONS (5)
  - Tinea cruris [Recovered/Resolved]
  - Dermatitis [Recovered/Resolved]
  - Pain of skin [None]
  - Cellulitis [Recovered/Resolved]
  - Burning sensation [None]

NARRATIVE: CASE EVENT DATE: 201509
